FAERS Safety Report 11328759 (Version 4)
Quarter: 2015Q3

REPORT INFORMATION
  Report Type: Report from Study
  Country: US (occurrence: US)
  Receive Date: 20150731
  Receipt Date: 20150828
  Transmission Date: 20151125
  Serious: Yes (Congenital Anomaly)
  Sender: FDA-Public Use
  Company Number: US-009507513-1507USA014724

PATIENT
  Sex: Male
  Weight: 2.48 kg

DRUGS (8)
  1. TRUVADA [Suspect]
     Active Substance: EMTRICITABINE\TENOFOVIR DISOPROXIL FUMARATE
     Dosage: 1 TAB/CAP, QD
     Route: 064
  2. DIACETYLMORPHINE [Suspect]
     Active Substance: DIACETYLMORPHINE
     Dosage: UNK
     Route: 064
     Dates: end: 2014
  3. COCAINE [Suspect]
     Active Substance: COCAINE
     Dosage: UNK
     Route: 064
     Dates: end: 2014
  4. SULFAMETHOXAZOLE (+) TRIMETHOPRIM [Suspect]
     Active Substance: SULFAMETHOXAZOLE\TRIMETHOPRIM
     Dosage: UNK
     Route: 064
  5. RISPERDAL [Suspect]
     Active Substance: RISPERIDONE
     Dosage: UNK
     Route: 064
     Dates: end: 2014
  6. ISENTRESS [Suspect]
     Active Substance: RALTEGRAVIR POTASSIUM
     Dosage: 800 MG, QD
     Route: 064
  7. METHADONE HYDROCHLORIDE. [Suspect]
     Active Substance: METHADONE HYDROCHLORIDE
     Dosage: UNK
     Route: 064
     Dates: start: 2014
  8. EFFEXOR [Suspect]
     Active Substance: VENLAFAXINE HYDROCHLORIDE
     Dosage: UNK
     Route: 064
     Dates: end: 2014

REACTIONS (4)
  - Tremor [Unknown]
  - Foetal exposure during pregnancy [Recovered/Resolved]
  - Nervous system disorder [Unknown]
  - Premature baby [Unknown]
